FAERS Safety Report 5855093-1 (Version None)
Quarter: 2008Q3

REPORT INFORMATION
  Report Type: 
  Country: None (occurrence: None)
  Receive Date: 20080822
  Receipt Date: 20080702
  Transmission Date: 20090109
  Serious: No
  Sender: FDA-Public Use
  Company Number: US-ABBOTT-08P-163-0461091-00

PATIENT
  Sex: Female
  Weight: 72.64 kg

DRUGS (5)
  1. SYNTHROID [Suspect]
     Indication: HYPOTHYROIDISM
     Route: 048
     Dates: start: 19910101
  2. SYNTHROID [Suspect]
     Route: 048
     Dates: end: 20080613
  3. SYNTHROID [Suspect]
     Route: 048
     Dates: start: 20080613
  4. SYNTHROID [Suspect]
  5. SYNTHROID [Suspect]

REACTIONS (2)
  - PRURITUS [None]
  - SENSORY DISTURBANCE [None]
